FAERS Safety Report 10401352 (Version 6)
Quarter: 2016Q2

REPORT INFORMATION
  Report Type: Report from Study
  Country: PL (occurrence: PL)
  Receive Date: 20140822
  Receipt Date: 20160524
  Transmission Date: 20160815
  Serious: Yes (Death, Life-Threatening, Hospitalization)
  Sender: FDA-Public Use
  Company Number: PL-ROCHE-1452322

PATIENT
  Age: 72 Year
  Sex: Female
  Weight: 48 kg

DRUGS (9)
  1. PREDNISONE. [Suspect]
     Active Substance: PREDNISONE
     Indication: DIFFUSE LARGE B-CELL LYMPHOMA
     Dosage: DATE OF LAST DOSE PRIOR TO EASY FATIGUE, EMESIS AND SUDDEN DEATH - 07/JUL/2014, DOSE-100 MG
     Route: 048
     Dates: start: 20140210
  2. RITUXIMAB [Suspect]
     Active Substance: RITUXIMAB
     Indication: DIFFUSE LARGE B-CELL LYMPHOMA
     Dosage: DATE OF MOST RECENT DOSE PRIOR TO EASY FATIGUE, EMESIS AND SUDDEN DEATH - 07/JUL/2014 1.10 MG/ML, TO
     Route: 042
     Dates: start: 20140210
  3. CYCLOPHOSPHAMIDE. [Suspect]
     Active Substance: CYCLOPHOSPHAMIDE
     Indication: DIFFUSE LARGE B-CELL LYMPHOMA
     Dosage: DATE OF LAST DOSE PRIOR TO EASY FATIGUE, EMESIS AND SUDDEN DEATH - 07/JUL/2014, DOSE-1179.15 MG
     Route: 042
     Dates: start: 20140210
  4. CIPROFLOXACINUM [Concomitant]
     Indication: NEUTROPENIA
     Route: 065
     Dates: start: 20140714
  5. OMEPRAZOLUM [Concomitant]
     Indication: PROPHYLAXIS
     Route: 065
     Dates: start: 20140208
  6. VINCRISTINE [Suspect]
     Active Substance: VINCRISTINE
     Indication: DIFFUSE LARGE B-CELL LYMPHOMA
     Dosage: DATE OF LAST DOSE PRIOR TO EASY FATIGUE, EMESIS AND SUDDEN DEATH - 07/JUL/2014, DOSE- 2 MG
     Route: 040
     Dates: start: 20140210
  7. DOXORUBICIN [Suspect]
     Active Substance: DOXORUBICIN
     Indication: DIFFUSE LARGE B-CELL LYMPHOMA
     Dosage: DATE OF LAST DOSE PRIOR TO EASY FATIGUE, EMESIS AND SUDDEN DEATH - 07/JUL/2014, DOSE- 73.7 MG
     Route: 042
     Dates: start: 20140210
  8. ENARENAL [Concomitant]
     Active Substance: ENALAPRIL
     Indication: HYPERTENSION
     Route: 065
     Dates: start: 2009
  9. POTAZEK+ [Concomitant]
     Indication: PROPHYLAXIS
     Route: 065
     Dates: start: 20140212

REACTIONS (3)
  - Sudden death [Fatal]
  - Fatigue [Not Recovered/Not Resolved]
  - Vomiting [Not Recovered/Not Resolved]

NARRATIVE: CASE EVENT DATE: 20140819
